FAERS Safety Report 6683351-X (Version None)
Quarter: 2010Q2

REPORT INFORMATION
  Report Type: 
  Country: None (occurrence: None)
  Receive Date: 20100415
  Receipt Date: 20100405
  Transmission Date: 20101027
  Serious: Yes (Other)
  Sender: FDA-Public Use
  Company Number: IN-BAXTER-2010BH009164

PATIENT

DRUGS (1)
  1. PLASMA-LYTE 56 AND DEXTROSE 5% IN PLASTIC CONTAINER [Suspect]
     Indication: ELECTROLYTE IMBALANCE
     Route: 042
     Dates: start: 20100404, end: 20100404

REACTIONS (1)
  - CHILLS [None]
